FAERS Safety Report 4451625-9 (Version None)
Quarter: 2004Q3

REPORT INFORMATION
  Report Type: 
  Country: None (occurrence: None)
  Receive Date: 20040915
  Receipt Date: 20040831
  Transmission Date: 20050211
  Serious: Yes (Hospitalization)
  Sender: FDA-Public Use
  Company Number: 2003-05311

PATIENT
  Age: 38 Year
  Sex: Male

DRUGS (11)
  1. TENOFOVIR DISOPROXIL FUMARATE (TENOFOVIR DISOPROXIL FUMARATE) [Suspect]
     Indication: HIV INFECTION
     Dosage: 300 MG, 1 IN 1 D; ORAL (SEE IMAGE)
     Route: 048
     Dates: start: 20020125, end: 20021028
  2. TENOFOVIR DISOPROXIL FUMARATE (TENOFOVIR DISOPROXIL FUMARATE) [Suspect]
     Indication: HIV INFECTION
     Dosage: 300 MG, 1 IN 1 D; ORAL (SEE IMAGE)
     Route: 048
     Dates: start: 20021208
  3. KALETRA [Concomitant]
  4. DIDANOSINE [Concomitant]
  5. 3TC (LAMIVUDINE) [Concomitant]
  6. VALGANCICLOVIR [Concomitant]
  7. DILANTIN [Concomitant]
  8. SEPTRA [Concomitant]
  9. FLUCONAZOLE [Concomitant]
  10. AZITHROMYCIN [Concomitant]
  11. LACTULOSE [Concomitant]

REACTIONS (15)
  - ASTHENIA [None]
  - CACHEXIA [None]
  - CANDIDIASIS [None]
  - CD4 LYMPHOCYTES DECREASED [None]
  - CONSTIPATION [None]
  - EROSIVE OESOPHAGITIS [None]
  - GASTROOESOPHAGEAL REFLUX DISEASE [None]
  - IMPAIRED GASTRIC EMPTYING [None]
  - INFLAMMATION [None]
  - MARKEDLY REDUCED DIETARY INTAKE [None]
  - NAUSEA [None]
  - OESOPHAGEAL CANDIDIASIS [None]
  - ORAL CANDIDIASIS [None]
  - RENAL TUBULAR ACIDOSIS [None]
  - VOMITING [None]
